FAERS Safety Report 25585368 (Version 1)
Quarter: 2025Q3

REPORT INFORMATION
  Report Type: Spontaneous
  Country: US (occurrence: None)
  Receive Date: 20250718
  Receipt Date: 20250718
  Transmission Date: 20251020
  Serious: No
  Sender: FDA-CTU
  Company Number: None

PATIENT
  Sex: Female
  Weight: 72.9 kg

DRUGS (2)
  1. CONTRAVE [Suspect]
     Active Substance: BUPROPION HYDROCHLORIDE\NALTREXONE HYDROCHLORIDE
     Indication: Weight decreased
     Dosage: 2 CPSULES TEIC  DAY ORAL ?
     Route: 048
     Dates: start: 20250525, end: 20250711
  2. VITAMIN D NOS [Concomitant]
     Active Substance: CHOLECALCIFEROL\ERGOCALCIFEROL

REACTIONS (10)
  - Swollen tongue [None]
  - Lymphadenopathy [None]
  - Dry throat [None]
  - Muscle spasms [None]
  - Oropharyngeal pain [None]
  - Headache [None]
  - Mood altered [None]
  - Anger [None]
  - Constipation [None]
  - Diarrhoea [None]
